FAERS Safety Report 20034731 (Version 1)
Quarter: 2021Q4

REPORT INFORMATION
  Report Type: Spontaneous
  Country: CN (occurrence: CN)
  Receive Date: 20211104
  Receipt Date: 20211104
  Transmission Date: 20220303
  Serious: Yes (Other)
  Sender: FDA-Public Use
  Company Number: CN-PFIZER INC-202101450619

PATIENT
  Sex: Female
  Weight: 80 kg

DRUGS (2)
  1. METHOTREXATE [Suspect]
     Active Substance: METHOTREXATE
     Indication: Abortion induced
     Dosage: 0.095 G, 1X/DAY
     Route: 030
     Dates: start: 20211009, end: 20211009
  2. SODIUM CHLORIDE [Concomitant]
     Active Substance: SODIUM CHLORIDE
     Indication: Vehicle solution use
     Dosage: 4 ML, 1X/DAY
     Route: 030
     Dates: start: 20211009, end: 20211009

REACTIONS (3)
  - Liver injury [Recovered/Resolved]
  - Hepatic enzyme abnormal [Recovered/Resolved]
  - Off label use [Unknown]

NARRATIVE: CASE EVENT DATE: 20211009
